FAERS Safety Report 4696109-8 (Version None)
Quarter: 2005Q2

REPORT INFORMATION
  Report Type: 
  Country: None (occurrence: None)
  Receive Date: 20050620
  Receipt Date: 20050603
  Transmission Date: 20051028
  Serious: Yes (Hospitalization, Other)
  Sender: FDA-Public Use
  Company Number: DSA_26579_2005

PATIENT
  Age: 32 Year
  Sex: Male

DRUGS (7)
  1. TEMESTA [Suspect]
     Dosage: 5 MG Q DAY PO
     Route: 048
     Dates: start: 20050129, end: 20050207
  2. TEMESTA [Suspect]
     Dosage: 8.75 MG Q DAY PO
     Route: 048
     Dates: start: 20050208
  3. TEMESTA [Suspect]
     Dosage: 1.25 MG Q DAY PO
     Route: 048
     Dates: start: 20050121, end: 20050127
  4. TEMESTA [Suspect]
     Dosage: 3.75 MG Q DAY PO
     Route: 048
     Dates: start: 20050128, end: 20050128
  5. ABILIFY [Suspect]
     Dosage: 30 MG Q DAY PO
     Route: 048
     Dates: start: 20050131
  6. ABILIFY [Suspect]
     Dosage: 15 MG Q DAY PO
     Route: 048
     Dates: start: 20050121, end: 20050130
  7. TRITTICO [Concomitant]

REACTIONS (8)
  - ALANINE AMINOTRANSFERASE INCREASED [None]
  - ASPARTATE AMINOTRANSFERASE INCREASED [None]
  - BLOOD ALKALINE PHOSPHATASE INCREASED [None]
  - BLOOD POTASSIUM DECREASED [None]
  - EXTRAPYRAMIDAL DISORDER [None]
  - MUSCLE SPASMS [None]
  - NASOPHARYNGEAL DISORDER [None]
  - TONGUE DISORDER [None]
